FAERS Safety Report 8339305-0 (Version None)
Quarter: 2012Q2

REPORT INFORMATION
  Report Type: 
  Country: None (occurrence: None)
  Receive Date: 20120502
  Receipt Date: 20120417
  Transmission Date: 20120825
  Serious: Yes (Hospitalization, Other)
  Sender: FDA-Public Use
  Company Number: 2012P1017803

PATIENT
  Age: 64 Year
  Sex: Male
  Weight: 166.6515 kg

DRUGS (2)
  1. CEFTAZIDIME [Suspect]
     Indication: PYREXIA
     Dosage: IV
     Route: 042
     Dates: start: 20111202, end: 20111220
  2. CYCLOSPORINE [Suspect]
     Indication: APLASTIC ANAEMIA
     Dosage: PO
     Route: 048
     Dates: start: 20111111

REACTIONS (2)
  - BACK PAIN [None]
  - ANAPHYLACTIC REACTION [None]
